FAERS Safety Report 9292022 (Version 1)
Quarter: 2013Q2

REPORT INFORMATION
  Report Type: Spontaneous
  Country: US (occurrence: US)
  Receive Date: 20130516
  Receipt Date: 20130516
  Transmission Date: 20140414
  Serious: No
  Sender: FDA-Public Use
  Company Number: US-PFIZER INC-0008111301PHAMED

PATIENT
  Age: 56 Year
  Sex: Female

DRUGS (5)
  1. ALPRAZOLAM [Suspect]
     Indication: AGORAPHOBIA
     Dosage: 2-3 MG PER DAY
     Route: 048
  2. ALPRAZOLAM [Suspect]
     Indication: ANXIETY
     Dosage: 1 MG PER DAY
     Route: 048
  3. ALPRAZOLAM [Suspect]
     Indication: PANIC REACTION
  4. ANSAID [Concomitant]
     Dosage: UNK
     Dates: start: 199411
  5. PROCARDIA XL [Concomitant]
     Dosage: UNK
     Dates: start: 199411

REACTIONS (5)
  - Product quality issue [Recovering/Resolving]
  - Drug ineffective [Recovering/Resolving]
  - Arthralgia [Recovering/Resolving]
  - Depression [Recovered/Resolved]
  - Aggression [Recovered/Resolved]
